FAERS Safety Report 13624228 (Version 1)
Quarter: 2017Q2

REPORT INFORMATION
  Report Type: Report from Study
  Country: None (occurrence: US)
  Receive Date: 20170608
  Receipt Date: 20170608
  Transmission Date: 20170830
  Serious: Yes (Other)
  Sender: FDA-Public Use
  Company Number: US-ABBVIE-17K-163-1996068-00

PATIENT
  Sex: Female

DRUGS (2)
  1. HUMIRA [Suspect]
     Active Substance: ADALIMUMAB
     Route: 058
     Dates: start: 201705
  2. HUMIRA [Suspect]
     Active Substance: ADALIMUMAB
     Indication: ANKYLOSING SPONDYLITIS
     Route: 058
     Dates: start: 20160714, end: 201705

REACTIONS (14)
  - Feeling hot [Unknown]
  - Dermatitis [Recovered/Resolved]
  - Musculoskeletal stiffness [Unknown]
  - Headache [Unknown]
  - Macular degeneration [Recovered/Resolved]
  - Joint range of motion decreased [Unknown]
  - Fatigue [Unknown]
  - Loss of personal independence in daily activities [Unknown]
  - Neck pain [Unknown]
  - Arthralgia [Unknown]
  - Tenderness [Unknown]
  - Hyperhidrosis [Unknown]
  - Back pain [Unknown]
  - Erythema [Unknown]

NARRATIVE: CASE EVENT DATE: 2016
